FAERS Safety Report 15854735 (Version 3)
Quarter: 2019Q1

REPORT INFORMATION
  Report Type: Report from Study
  Country: US (occurrence: US)
  Receive Date: 20190122
  Receipt Date: 20190226
  Transmission Date: 20190417
  Serious: Yes (Hospitalization)
  Sender: FDA-Public Use
  Company Number: US-EXELIXIS-CABO-19018051

PATIENT
  Age: 50 Year
  Sex: Male

DRUGS (1)
  1. CABOMETYX [Suspect]
     Active Substance: CABOZANTINIB S-MALATE
     Indication: PRODUCT USED FOR UNKNOWN INDICATION
     Dosage: 60 MG, QD (EMPTY STOMACH)
     Dates: start: 20181220, end: 20190121

REACTIONS (7)
  - Stomatitis [Unknown]
  - Abdominal pain [Unknown]
  - Decreased appetite [Recovering/Resolving]
  - Hypercalcaemia [Unknown]
  - Pain in extremity [Unknown]
  - Constipation [Unknown]
  - Fatigue [Unknown]

NARRATIVE: CASE EVENT DATE: 201812
